FAERS Safety Report 8575677-X (Version None)
Quarter: 2012Q3

REPORT INFORMATION
  Report Type: 
  Country: None (occurrence: None)
  Receive Date: 20120807
  Receipt Date: 20120803
  Transmission Date: 20120928
  Serious: Yes (Other)
  Sender: FDA-Public Use
  Company Number: PHHY2012BR057947

PATIENT
  Sex: Female

DRUGS (2)
  1. DIOVAN HCT [Suspect]
     Indication: HYPERTENSION
     Dosage: 1 DF (80 MG VALS/12.5 MG HYDRO) A DAY
     Route: 048
  2. SPIRIVA [Concomitant]
     Indication: DYSPNOEA
     Dosage: 2 DF, DAILY

REACTIONS (5)
  - EMPHYSEMA [None]
  - FALL [None]
  - ABASIA [None]
  - POST PROCEDURAL COMPLICATION [None]
  - FEMUR FRACTURE [None]
